FAERS Safety Report 6942239-7 (Version None)
Quarter: 2010Q3

REPORT INFORMATION
  Report Type: 
  Country: None (occurrence: None)
  Receive Date: 20100826
  Receipt Date: 20100817
  Transmission Date: 20110219
  Serious: Yes (Hospitalization)
  Sender: FDA-Public Use
  Company Number: US-JNJFOC-20090900947

PATIENT
  Age: 20 Year
  Sex: Female

DRUGS (2)
  1. REMICADE [Suspect]
     Indication: SARCOIDOSIS
     Route: 042
  2. STEROIDS NOS [Concomitant]

REACTIONS (1)
  - RENAL CELL CARCINOMA [None]
